FAERS Safety Report 5125692-3 (Version None)
Quarter: 2006Q3

REPORT INFORMATION
  Report Type: 
  Country: None (occurrence: None)
  Receive Date: 20060814
  Receipt Date: 20050718
  Transmission Date: 20061208
  Serious: Yes (Other)
  Sender: FDA-Public Use
  Company Number: 2004290

PATIENT
  Age: 76 Year
  Sex: Female

DRUGS (4)
  1. VISUDYNE [Suspect]
     Indication: CHOROIDAL NEOVASCULARISATION
     Dosage: 6 MKG /M2 ONCE IV
     Route: 042
     Dates: start: 20040921, end: 20040921
  2. VISUDYNE [Suspect]
     Indication: MACULAR DEGENERATION
     Dosage: 6 MKG /M2 ONCE IV
     Route: 042
     Dates: start: 20040921, end: 20040921
  3. KENALOG [Suspect]
     Indication: CHOROIDAL NEOVASCULARISATION
     Dosage: 1 MG DAILY EY
     Dates: start: 20040921, end: 20040921
  4. KENALOG [Suspect]
     Indication: MACULAR DEGENERATION
     Dosage: 1 MG DAILY EY
     Dates: start: 20040921, end: 20040921

REACTIONS (1)
  - VISUAL ACUITY REDUCED [None]
